FAERS Safety Report 17809157 (Version 1)
Quarter: 2020Q2

REPORT INFORMATION
  Report Type: Spontaneous
  Country: US (occurrence: US)
  Receive Date: 20200520
  Receipt Date: 20200520
  Transmission Date: 20200714
  Serious: Yes (Hospitalization, Other)
  Sender: FDA-Public Use
  Company Number: US-SA-2017SA087669

PATIENT
  Age: 6 Year
  Sex: Male
  Weight: 20 kg

DRUGS (1)
  1. ALDURAZYME [Suspect]
     Active Substance: LARONIDASE
     Indication: MUCOPOLYSACCHARIDOSIS I
     Dosage: 11.6 MG,QW
     Route: 041
     Dates: start: 20130510

REACTIONS (5)
  - Hospitalisation [Unknown]
  - Pyrexia [Unknown]
  - Infection [Unknown]
  - Pulmonary congestion [Unknown]
  - Cough [Unknown]

NARRATIVE: CASE EVENT DATE: 20180110
